FAERS Safety Report 9562244 (Version 2)
Quarter: 2013Q4

REPORT INFORMATION
  Report Type: Spontaneous
  Country: BR (occurrence: BR)
  Receive Date: 20130927
  Receipt Date: 20131025
  Transmission Date: 20140711
  Serious: Yes (Other)
  Sender: FDA-Public Use
  Company Number: BR-PFIZER INC-2013276678

PATIENT
  Age: 30 Year
  Sex: Female

DRUGS (1)
  1. NORDETTE [Suspect]
     Indication: CONTRACEPTION
     Dosage: 1 DF, 1X/DAY (AT NIGHT), STRENGTH 0.03 MG/0.15 MG
     Route: 048
     Dates: start: 2000

REACTIONS (6)
  - Urinary tract infection [Unknown]
  - Inappropriate schedule of drug administration [Unknown]
  - Nausea [Unknown]
  - Dizziness [Not Recovered/Not Resolved]
  - Abdominal discomfort [Not Recovered/Not Resolved]
  - Metrorrhagia [Unknown]
